FAERS Safety Report 23711230 (Version 1)
Quarter: 2024Q2

REPORT INFORMATION
  Report Type: Spontaneous
  Country: FR (occurrence: FR)
  Receive Date: 20240405
  Receipt Date: 20240405
  Transmission Date: 20240717
  Serious: Yes (Other)
  Sender: FDA-Public Use
  Company Number: FR-AFSSAPS-RN2024000285

PATIENT
  Age: 89 Year
  Sex: Male

DRUGS (3)
  1. AMOXICILLIN [Suspect]
     Active Substance: AMOXICILLIN
     Indication: Endocarditis enterococcal
     Dosage: 12 GRAM (12G/24H)
     Route: 042
     Dates: start: 20240105, end: 20240109
  2. AUGMENTIN [Suspect]
     Active Substance: AMOXICILLIN\CLAVULANATE POTASSIUM
     Indication: Endocarditis enterococcal
     Dosage: UNK
     Route: 042
     Dates: start: 20240103, end: 20240105
  3. CEFAZOLIN SODIUM [Suspect]
     Active Substance: CEFAZOLIN SODIUM
     Indication: Endocarditis enterococcal
     Dosage: 3 GRAM, ONCE A DAY (3G/24H)
     Route: 042
     Dates: start: 20240105, end: 20240108

REACTIONS (2)
  - Encephalopathy [Recovered/Resolved]
  - Overdose [Recovered/Resolved]

NARRATIVE: CASE EVENT DATE: 20240109
